FAERS Safety Report 24784175 (Version 1)
Quarter: 2024Q4

REPORT INFORMATION
  Report Type: Report from Study
  Country: PT (occurrence: PT)
  Receive Date: 20241227
  Receipt Date: 20241227
  Transmission Date: 20250115
  Serious: Yes (Hospitalization, Other)
  Sender: ABBVIE
  Company Number: PT-ABBVIE-6065295

PATIENT
  Age: 68 Year
  Sex: Male

DRUGS (10)
  1. CARBIDOPA\LEVODOPA [Suspect]
     Active Substance: CARBIDOPA\LEVODOPA
     Indication: Parkinson^s disease
     Dosage: 240 MG + 12 MG, LOAD1.5;BASE0.34;LOW0.25;EXTRA0.15
     Route: 058
     Dates: start: 2024, end: 20241221
  2. CARBIDOPA\LEVODOPA [Suspect]
     Active Substance: CARBIDOPA\LEVODOPA
     Dosage: 240 MG + 12 MG, LOAD1.5;HIGH0.42;BASE0.4;LOW0.2;EXTR0.2, LAST ADMIN DATE: 2024
     Route: 058
     Dates: start: 20241129
  3. CARBIDOPA\LEVODOPA [Suspect]
     Active Substance: CARBIDOPA\LEVODOPA
     Dosage: 240 MG + 12 MG, LOAD1.5;HIGH0.42;BASE0.4;LOW0.2;EXTR0.2
     Route: 058
     Dates: start: 20241222
  4. QUETIAPINE [Concomitant]
     Active Substance: QUETIAPINE
     Indication: Product used for unknown indication
     Dosage: 4 TABLET, 1TAB 9H, 12H + 2TAB AT 21H
  5. XARELTO [Concomitant]
     Active Substance: RIVAROXABAN
     Indication: Pulmonary embolism
  6. Sinemet (levodopa + carbidopa) [Concomitant]
     Indication: Product used for unknown indication
     Dosage: 1.5 TABLET, AT 21H
  7. Sinemet (levodopa + carbidopa) [Concomitant]
     Indication: Product used for unknown indication
     Dosage: 8 TABLET, 2 TAB AT 9H, 12H, 15H 18H
  8. Cipralex (escitalopram) [Concomitant]
     Indication: Product used for unknown indication
     Dosage: 1 TABLET, AT 9AM
  9. Sinemet CR (levodopa + carbidopa) [Concomitant]
     Indication: Product used for unknown indication
     Dosage: 1 TABLET, AT BEDTIME
  10. MEMANTINE [Concomitant]
     Active Substance: MEMANTINE
     Indication: Product used for unknown indication

REACTIONS (3)
  - Seizure [Recovered/Resolved]
  - Therapy cessation [Recovered/Resolved]
  - Fall [Recovered/Resolved]

NARRATIVE: CASE EVENT DATE: 20241221
